FAERS Safety Report 9759793 (Version 2)
Quarter: 2013Q4

REPORT INFORMATION
  Report Type: Spontaneous
  Country: US (occurrence: US)
  Receive Date: 20131216
  Receipt Date: 20131216
  Transmission Date: 20140711
  Serious: No
  Sender: FDA-Public Use
  Company Number: US-GILEAD-2010-0029081

PATIENT
  Sex: Female
  Weight: 52.16 kg

DRUGS (11)
  1. LETAIRIS [Suspect]
     Indication: PULMONARY ARTERIAL HYPERTENSION
     Route: 048
     Dates: start: 20100326
  2. FUROSEMIDE [Concomitant]
  3. SYNTHROID [Concomitant]
  4. REVATIO [Concomitant]
  5. NEXIUM [Concomitant]
  6. KLOR-CON [Concomitant]
  7. B-COMPLEX W/VIT B12 [Concomitant]
  8. PANCRELIPASE [Concomitant]
  9. WARFARIN [Concomitant]
  10. VITAMIN D [Concomitant]
  11. CALCIUM [Concomitant]

REACTIONS (2)
  - Creatinine renal clearance increased [Unknown]
  - Local swelling [Unknown]
